FAERS Safety Report 9202475 (Version 3)
Quarter: 2014Q2

REPORT INFORMATION
  Report Type: Spontaneous
  Country: US (occurrence: US)
  Receive Date: 20130401
  Receipt Date: 20140506
  Transmission Date: 20141212
  Serious: No
  Sender: FDA-Public Use
  Company Number: US-PFIZER INC-2013099781

PATIENT
  Age: 71 Year
  Sex: Female
  Weight: 65.8 kg

DRUGS (10)
  1. VENLAFAXINE HCL [Suspect]
     Indication: ANXIETY
     Dosage: 225 MG, 1X/DAY (3 X75MG/DAY)
     Route: 048
     Dates: start: 201301
  2. VENLAFAXINE HCL [Suspect]
     Indication: DEPRESSION
  3. PRILOSEC [Concomitant]
     Dosage: UNK
  4. KLONOPIN [Concomitant]
     Dosage: UNK
  5. BENTYL [Concomitant]
     Dosage: UNK
  6. MOBIC [Concomitant]
     Dosage: UNK
  7. ESTRADIOL [Concomitant]
     Dosage: UNK
  8. NEURONTIN [Concomitant]
     Indication: NERVE INJURY
     Dosage: 600 MG, 2X/DAY
  9. TRAMADOL [Concomitant]
     Dosage: 50 MG, 3X/DAY
  10. NORCO [Concomitant]
     Dosage: UNK

REACTIONS (7)
  - Cystitis [Unknown]
  - Nerve injury [Unknown]
  - Nervousness [Unknown]
  - Coordination abnormal [Unknown]
  - Feeling abnormal [Unknown]
  - Headache [Unknown]
  - Anxiety [Unknown]
